FAERS Safety Report 7047003-9 (Version None)
Quarter: 2010Q4

REPORT INFORMATION
  Report Type: 
  Country: None (occurrence: None)
  Receive Date: 20101012
  Receipt Date: 20100927
  Transmission Date: 20110411
  Serious: Yes (Hospitalization, Other)
  Sender: FDA-Public Use
  Company Number: TCI2010A03877

PATIENT
  Age: 81 Year
  Sex: Female

DRUGS (7)
  1. ACTOS [Suspect]
     Indication: DIABETES MELLITUS
     Dosage: PER ORAL
     Route: 048
     Dates: end: 20100822
  2. NESINA TABLETS 25MG (SYR-322) [Suspect]
     Indication: DIABETES MELLITUS
     Dosage: 25 MG (25 MG, 1 IN 1 D) PER ORAL
     Route: 048
     Dates: start: 20100823, end: 20100907
  3. FUROSEMIDE [Suspect]
     Dosage: 40 MG (40 MG, 1 IN 1 D) PER ORAL
     Route: 048
     Dates: start: 20100823
  4. CARVEDILOL [Suspect]
     Dosage: 2.5 MG (2.5 MG, 1 IN 1 D) PER ORAL
     Route: 048
     Dates: start: 20100823
  5. PRAVASTATIN SODIUM [Concomitant]
  6. LISINOPRIL [Concomitant]
  7. NICHIASPIRIN (ACETYLSALICYLIC ACID) [Concomitant]

REACTIONS (4)
  - CARDIAC FAILURE [None]
  - CARDIOMEGALY [None]
  - GENERALISED ERYTHEMA [None]
  - PULMONARY CONGESTION [None]
